FAERS Safety Report 5029602-9 (Version None)
Quarter: 2006Q2

REPORT INFORMATION
  Report Type: 
  Country: None (occurrence: None)
  Receive Date: 20060620
  Receipt Date: 20060605
  Transmission Date: 20061013
  Serious: Yes (Other)
  Sender: FDA-Public Use
  Company Number: GB-GLAXOSMITHKLINE-B0426925A

PATIENT
  Sex: Male

DRUGS (1)
  1. PIRITON [Suspect]
     Route: 065

REACTIONS (1)
  - ANAEMIA [None]
